FAERS Safety Report 13444224 (Version 1)
Quarter: 2017Q2

REPORT INFORMATION
  Report Type: Spontaneous
  Country: FI (occurrence: FI)
  Receive Date: 20170414
  Receipt Date: 20170414
  Transmission Date: 20170830
  Serious: Yes (Other)
  Sender: FDA-Public Use
  Company Number: FI-PFIZER INC-2017157181

PATIENT
  Sex: Male

DRUGS (1)
  1. LYRICA [Suspect]
     Active Substance: PREGABALIN
     Dosage: 75 MG, 2X/DAY
     Route: 048

REACTIONS (6)
  - Urinary retention [Unknown]
  - Blindness unilateral [Unknown]
  - Visual impairment [Unknown]
  - Headache [Unknown]
  - Diplopia [Unknown]
  - Weight increased [Unknown]
